FAERS Safety Report 5840793-X (Version None)
Quarter: 2008Q3

REPORT INFORMATION
  Report Type: 
  Country: None (occurrence: None)
  Receive Date: 20080811
  Receipt Date: 20080701
  Transmission Date: 20090109
  Serious: Yes (Other)
  Sender: FDA-Public Use
  Company Number: US-PFIZER INC-2008050365

PATIENT
  Sex: Female
  Weight: 67.6 kg

DRUGS (6)
  1. XANAX [Suspect]
  2. PEGASYS [Suspect]
     Indication: HEPATITIS C
     Route: 058
     Dates: start: 20071005, end: 20071205
  3. RIBAVIRIN [Suspect]
     Indication: HEPATITIS C
     Dosage: DAILY DOSE:1000MG
     Route: 048
     Dates: start: 20071005, end: 20071205
  4. LISINOPRIL [Concomitant]
  5. ATIVAN [Concomitant]
  6. HYDROCHLOROTHIAZIDE [Concomitant]

REACTIONS (7)
  - ANXIETY [None]
  - CONVULSION [None]
  - DRUG ABUSE [None]
  - DYSARTHRIA [None]
  - HYPERSOMNIA [None]
  - NEUROMYOPATHY [None]
  - OVERDOSE [None]
